FAERS Safety Report 22344259 (Version 1)
Quarter: 2023Q2

REPORT INFORMATION
  Report Type: Other
  Country: CA (occurrence: CA)
  Receive Date: 20230519
  Receipt Date: 20230519
  Transmission Date: 20230722
  Serious: Yes (Hospitalization, Other)
  Sender: FDA-Public Use
  Company Number: CA-CELLTRION INC.-2023CA010119

PATIENT

DRUGS (31)
  1. RITUXIMAB [Suspect]
     Active Substance: RITUXIMAB
     Indication: Vasculitis
     Dosage: UNK
     Route: 065
  2. RITUXIMAB [Suspect]
     Active Substance: RITUXIMAB
     Indication: Microscopic polyangiitis
     Dosage: 1000 MILLIGRAM
     Route: 042
  3. RITUXIMAB [Suspect]
     Active Substance: RITUXIMAB
     Indication: Interstitial lung disease
     Dosage: UNK
     Route: 065
  4. RITUXIMAB [Suspect]
     Active Substance: RITUXIMAB
     Dosage: 500 MILLIGRAM
     Route: 042
  5. RITUXIMAB [Suspect]
     Active Substance: RITUXIMAB
     Dosage: UNK
     Route: 065
  6. RITUXIMAB [Suspect]
     Active Substance: RITUXIMAB
     Dosage: UNK
     Route: 065
  7. AMLODIPINE [Concomitant]
     Active Substance: AMLODIPINE BESYLATE
     Route: 065
  8. ARANESP [Concomitant]
     Active Substance: DARBEPOETIN ALFA
  9. BENADRYL [Concomitant]
     Active Substance: DIPHENHYDRAMINE HYDROCHLORIDE
     Indication: Premedication
     Dosage: 50 MILLIGRAM
     Route: 048
  10. CINACALCET [Concomitant]
     Active Substance: CINACALCET
  11. CIPROFLOXACIN [Concomitant]
     Active Substance: CIPROFLOXACIN
  12. DOLUTEGRAVIR SODIUM [Concomitant]
     Active Substance: DOLUTEGRAVIR SODIUM
  13. EDURANT [Concomitant]
     Active Substance: RILPIVIRINE HYDROCHLORIDE
  14. ELIQUIS [Concomitant]
     Active Substance: APIXABAN
  15. EMLA [Concomitant]
     Active Substance: LIDOCAINE\PRILOCAINE
  16. FUROSEMIDE [Concomitant]
     Active Substance: FUROSEMIDE
     Route: 065
  17. IRON [Concomitant]
     Active Substance: IRON
     Route: 065
  18. JANUVIA [Concomitant]
     Active Substance: SITAGLIPTIN PHOSPHATE
     Route: 048
  19. LACTULOSE [Concomitant]
     Active Substance: LACTULOSE
  20. LANTUS [Concomitant]
     Active Substance: INSULIN GLARGINE
  21. MEPRON [Concomitant]
     Active Substance: ATOVAQUONE
  22. METOPROLOL [Concomitant]
     Active Substance: METOPROLOL
  23. MORPHINE SULFATE [Concomitant]
     Active Substance: MORPHINE SULFATE
  24. PERINDOPRIL [Concomitant]
     Active Substance: PERINDOPRIL
  25. PREDNISONE [Concomitant]
     Active Substance: PREDNISONE
  26. RANITIDINE [Concomitant]
     Active Substance: RANITIDINE
  27. ROSUVASTATIN [Concomitant]
     Active Substance: ROSUVASTATIN
     Route: 058
  28. ALBUTEROL [Concomitant]
     Active Substance: ALBUTEROL
  29. SENOKOT [Concomitant]
     Active Substance: SENNOSIDES
  30. SOLU-MEDROL [Concomitant]
     Active Substance: METHYLPREDNISOLONE SODIUM SUCCINATE
     Indication: Premedication
     Dosage: 100 MILLIGRAM
     Route: 042
  31. TYLENOL [Concomitant]
     Active Substance: ACETAMINOPHEN
     Indication: Premedication
     Dosage: 650 MILLIGRAM
     Route: 048

REACTIONS (2)
  - COVID-19 [Unknown]
  - Intentional product use issue [Unknown]
